FAERS Safety Report 6825965-X (Version None)
Quarter: 2010Q3

REPORT INFORMATION
  Report Type: 
  Country: None (occurrence: None)
  Receive Date: 20100709
  Receipt Date: 20100329
  Transmission Date: 20110219
  Serious: No
  Sender: FDA-Public Use
  Company Number: A0850940A

PATIENT
  Sex: Male

DRUGS (1)
  1. REQUIP XL [Suspect]
     Indication: PROPHYLAXIS
     Dosage: 8MG PER DAY
     Route: 048
     Dates: start: 20090901

REACTIONS (1)
  - MUSCLE TIGHTNESS [None]
